FAERS Safety Report 9905713 (Version 3)
Quarter: 2015Q3

REPORT INFORMATION
  Report Type: Spontaneous
  Country: US (occurrence: US)
  Receive Date: 20140218
  Receipt Date: 20150811
  Transmission Date: 20151125
  Serious: No
  Sender: FDA-Public Use
  Company Number: US-GILEAD-2012-0052265

PATIENT
  Age: 60 Year
  Sex: Male

DRUGS (4)
  1. LETAIRIS [Suspect]
     Active Substance: AMBRISENTAN
     Indication: LIVER TRANSPLANT
  2. LETAIRIS [Suspect]
     Active Substance: AMBRISENTAN
     Indication: HEPATITIS C
  3. SILDENAFIL. [Concomitant]
     Active Substance: SILDENAFIL
  4. LETAIRIS [Suspect]
     Active Substance: AMBRISENTAN
     Indication: PULMONARY HYPERTENSION
     Dosage: 10 MG, UNK
     Route: 048
     Dates: start: 20110121

REACTIONS (1)
  - Dysphagia [Unknown]
